FAERS Safety Report 8242743-8 (Version None)
Quarter: 2012Q1

REPORT INFORMATION
  Report Type: 
  Country: None (occurrence: None)
  Receive Date: 20120329
  Receipt Date: 20120326
  Transmission Date: 20120608
  Serious: Yes (Death)
  Sender: FDA-Public Use
  Company Number: JP-CUBIST-2012S1000299

PATIENT

DRUGS (3)
  1. CUBICIN [Suspect]
     Indication: SEPSIS
     Route: 041
     Dates: start: 20120306, end: 20120310
  2. VANCOMYCIN [Concomitant]
     Indication: SEPSIS
     Dosage: DOSE UNIT:U UNKNOWN
     Route: 065
  3. TEICOPLANIN [Concomitant]
     Indication: SEPSIS
     Dosage: DOSE UNIT:U UNKNOWN
     Route: 065

REACTIONS (1)
  - DEATH [None]
